FAERS Safety Report 4519965-2 (Version None)
Quarter: 2004Q4

REPORT INFORMATION
  Report Type: 
  Country: None (occurrence: None)
  Receive Date: 20041201
  Receipt Date: 20041201
  Transmission Date: 20050328
  Serious: Yes (Life-Threatening, Hospitalization)
  Sender: FDA-Public Use
  Company Number: None

PATIENT
  Age: 81 Year
  Sex: Male
  Weight: 72.2 kg

DRUGS (2)
  1. DIGOXIN [Suspect]
  2. FUROSEMIDE [Concomitant]

REACTIONS (3)
  - BRADYCARDIA [None]
  - DIARRHOEA [None]
  - HYPOTENSION [None]
